FAERS Safety Report 4555036-7 (Version None)
Quarter: 2005Q1

REPORT INFORMATION
  Report Type: 
  Country: None (occurrence: None)
  Receive Date: 20041228
  Receipt Date: 20040726
  Transmission Date: 20050727
  Serious: Yes (Other)
  Sender: FDA-Public Use
  Company Number: PHEH2004US04077

PATIENT
  Age: 53 Year
  Sex: Female

DRUGS (32)
  1. AREDIA [Suspect]
     Dosage: 90 MG  OVER 1-2 HOURS
     Dates: start: 19960101, end: 20020620
  2. ZOMETA [Suspect]
     Indication: METASTASES TO BONE
     Dosage: 4 MG OVER 15 MINUTES
     Dates: start: 20020718, end: 20030911
  3. LORAZEPAM [Concomitant]
  4. DEXAMETHASONE [Concomitant]
  5. DIPHENHYDRAMINE HYDROCHLORIDE [Concomitant]
  6. FILGRASTIM (FILGRASTIM) [Concomitant]
  7. GRANISETRON HYDROCHLORIDE (GRANISETRON HYDROCHLORIDE) [Concomitant]
  8. ONDANSETRON HCL [Concomitant]
  9. RANITIDINE HYDROCHLORIDE [Concomitant]
  10. CAPECITABINE (CAPECITABINE) [Concomitant]
  11. DEXRAZOXANE (DEXRAZOXANE) [Concomitant]
  12. FULVESTRANT (FULVESTRANT) [Concomitant]
  13. GEMCITABINE HYDROCHLORIDE (GEMCITABINE HYDROCHLORIDE) [Concomitant]
  14. TAXOL [Concomitant]
  15. VINORELBINE DITARTRATE (VINORELBINE DITARTRATE) [Concomitant]
  16. DOXORUBICIN HCL [Concomitant]
  17. EFFEXOR [Concomitant]
  18. PREVACID [Concomitant]
  19. AMBIEN [Concomitant]
  20. ALBUTEROL [Concomitant]
  21. IRINOTECAN (IRINOTECAN) [Concomitant]
  22. LOPERAMIDE HCL [Concomitant]
  23. ETOPOSIDE [Concomitant]
  24. PROCHLORPERAZINE MALEATE (PROCHLORPERAZINE MALEATE) [Concomitant]
  25. DIATRIZOIC ACID (AMIDOTRIZOIC ACID) [Concomitant]
  26. SMZ-TMP (SULFAMETHOXAZOLE) [Concomitant]
  27. VENLAFAXINE HCL [Concomitant]
  28. LANSOPRAZOZLE (LANSOPRAZOLE) [Concomitant]
  29. ZOLPIDEM TARTRATE [Concomitant]
  30. PNEUMOCOCCAL VACCINE (PNEUMOCOCCAL VACCINE) [Concomitant]
  31. INFLUENZA VACCINE (INFLUENZA VACCINE) [Concomitant]
  32. ADRIAMYCIN PFS [Concomitant]

REACTIONS (5)
  - FATIGUE [None]
  - ORAL MUCOSAL BLISTERING [None]
  - ORAL PAIN [None]
  - OSTEONECROSIS [None]
  - TOOTH EXTRACTION [None]
